FAERS Safety Report 12640297 (Version 1)
Quarter: 2016Q3

REPORT INFORMATION
  Report Type: Spontaneous
  Country: US (occurrence: US)
  Receive Date: 20160810
  Receipt Date: 20160810
  Transmission Date: 20161109
  Serious: Yes (Other)
  Sender: FDA-Public Use
  Company Number: US-FRESENIUS KABI-FK201605213

PATIENT
  Sex: Female

DRUGS (1)
  1. AZTREONAM FOR INJECTION (MANUFACTURER UNKNOWN) [Suspect]
     Active Substance: AZTREONAM
     Indication: INFECTION
     Route: 042

REACTIONS (2)
  - Haematochezia [Not Recovered/Not Resolved]
  - Melaena [Not Recovered/Not Resolved]

NARRATIVE: CASE EVENT DATE: 20160804
